FAERS Safety Report 14113575 (Version 1)
Quarter: 2017Q4

REPORT INFORMATION
  Report Type: Spontaneous
  Country: JP (occurrence: JP)
  Receive Date: 20171023
  Receipt Date: 20171023
  Transmission Date: 20180321
  Serious: Yes (Hospitalization, Other)
  Sender: FDA-Public Use
  Company Number: JP-ROCHE-2003534

PATIENT
  Age: 67 Year
  Sex: Female
  Weight: 52 kg

DRUGS (11)
  1. PREDONINE [Concomitant]
     Active Substance: PREDNISOLONE
     Dosage: THE FRACTIONATION DOSE FREQUENCY IS UNCERTAIN. ?DOSE INTERVAL UNCERTAINTY
     Route: 065
     Dates: start: 20160902, end: 201609
  2. PREDNISOLONE. [Concomitant]
     Active Substance: PREDNISOLONE
     Route: 048
     Dates: start: 20160929, end: 2016
  3. PREDONINE [Concomitant]
     Active Substance: PREDNISOLONE
     Dosage: THE FRACTIONATION DOSE FREQUENCY IS UNCERTAIN. ?DOSE INTERVAL UNCERTAINTY
     Route: 065
     Dates: start: 20160915, end: 201609
  4. PREDNISOLONE. [Concomitant]
     Active Substance: PREDNISOLONE
     Route: 048
     Dates: start: 20160821, end: 201608
  5. ACTEMRA [Suspect]
     Active Substance: TOCILIZUMAB
     Indication: RHEUMATOID ARTHRITIS
     Route: 042
     Dates: start: 20160922, end: 20161110
  6. PREDNISOLONE. [Concomitant]
     Active Substance: PREDNISOLONE
     Route: 048
     Dates: start: 20160901, end: 201609
  7. PREDNISOLONE. [Concomitant]
     Active Substance: PREDNISOLONE
     Route: 048
     Dates: start: 20161026, end: 2016
  8. PREDNISOLONE. [Concomitant]
     Active Substance: PREDNISOLONE
     Route: 048
     Dates: start: 20161214
  9. PREDONINE [Concomitant]
     Active Substance: PREDNISOLONE
     Dosage: THE FRACTIONATION DOSE FREQUENCY IS UNCERTAIN. ?DOSE INTERVAL UNCERTAINTY
     Route: 065
     Dates: start: 20160922
  10. PREDNISOLONE. [Concomitant]
     Active Substance: PREDNISOLONE
     Route: 048
     Dates: start: 20161111, end: 2016
  11. PREDNISOLONE. [Concomitant]
     Active Substance: PREDNISOLONE
     Route: 048
     Dates: start: 20161207, end: 201612

REACTIONS (6)
  - Diarrhoea [Unknown]
  - Clostridium difficile colitis [Unknown]
  - Gastrointestinal amyloidosis [Unknown]
  - Femoral neck fracture [Unknown]
  - Renal failure [Unknown]
  - Cytomegalovirus enterocolitis [Unknown]

NARRATIVE: CASE EVENT DATE: 20170131
